FAERS Safety Report 10573444 (Version 2)
Quarter: 2015Q1

REPORT INFORMATION
  Report Type: Spontaneous
  Country: US (occurrence: US)
  Receive Date: 20141110
  Receipt Date: 20150225
  Transmission Date: 20150720
  Serious: No
  Sender: FDA-Public Use
  Company Number: DE-ASTRAZENECA-2014SE84829

PATIENT
  Age: 72 Year
  Sex: Male

DRUGS (19)
  1. LIBRAX [Suspect]
     Active Substance: CHLORDIAZEPOXIDE HYDROCHLORIDE\CLIDINIUM BROMIDE
     Route: 065
     Dates: end: 201306
  2. AMARYL [Concomitant]
     Active Substance: GLIMEPIRIDE
     Indication: DIABETES MELLITUS
  3. PROSCAR [Concomitant]
     Active Substance: FINASTERIDE
     Indication: PROSTATOMEGALY
  4. ASPIRIN. [Concomitant]
     Active Substance: ASPIRIN
     Indication: PROPHYLAXIS
  5. UNKNOWN MEDICATION [Concomitant]
     Active Substance: UNSPECIFIED INGREDIENT
     Indication: OSTEOARTHRITIS
  6. HUMIRA [Suspect]
     Active Substance: ADALIMUMAB
     Indication: COLITIS ULCERATIVE
     Route: 065
     Dates: start: 20130624, end: 20130624
  7. LASIX [Concomitant]
     Active Substance: FUROSEMIDE
     Indication: OEDEMA
  8. UNKNOWN MEDICATION [Concomitant]
     Active Substance: UNSPECIFIED INGREDIENT
     Indication: COLITIS ULCERATIVE
  9. ASACOL HD [Concomitant]
     Active Substance: MESALAMINE
  10. VIMOVO [Suspect]
     Active Substance: ESOMEPRAZOLE MAGNESIUM\NAPROXEN
     Indication: OSTEOARTHRITIS
     Route: 048
     Dates: end: 20130701
  11. FLOMAX [Concomitant]
     Active Substance: TAMSULOSIN HYDROCHLORIDE
     Indication: PROSTATOMEGALY
  12. UNKNOWN MEDICATION [Concomitant]
     Active Substance: UNSPECIFIED INGREDIENT
     Indication: COLITIS ULCERATIVE
  13. UCERIS [Concomitant]
     Active Substance: BUDESONIDE
     Indication: COLITIS ULCERATIVE
  14. LATANAPROST SOLUTION [Concomitant]
     Indication: OCULAR DISCOMFORT
     Dosage: IN RIGHT EYE
  15. HUMIRA [Suspect]
     Active Substance: ADALIMUMAB
     Indication: COLITIS ULCERATIVE
     Route: 065
     Dates: end: 201406
  16. CANASA [Suspect]
     Active Substance: MESALAMINE
     Route: 065
     Dates: end: 20130701
  17. CORTISONE 10% [Concomitant]
     Dosage: AT NIGHT
     Route: 054
  18. HUMIRA [Suspect]
     Active Substance: ADALIMUMAB
     Indication: COLITIS ULCERATIVE
     Route: 065
     Dates: start: 20130610, end: 20130610
  19. UNKNOWN MEDICATION [Concomitant]
     Active Substance: UNSPECIFIED INGREDIENT
     Indication: OSTEOARTHRITIS

REACTIONS (6)
  - Injection site pain [Unknown]
  - Weight decreased [Unknown]
  - Injection site haemorrhage [Unknown]
  - Faeces discoloured [Unknown]
  - Drug ineffective [Unknown]
  - Diarrhoea [Unknown]

NARRATIVE: CASE EVENT DATE: 201306
